FAERS Safety Report 8699829 (Version 6)
Quarter: 2013Q2

REPORT INFORMATION
  Report Type: Spontaneous
  Country: US (occurrence: US)
  Receive Date: 20120802
  Receipt Date: 20130426
  Transmission Date: 20140414
  Serious: Yes (Hospitalization, Other)
  Sender: FDA-Public Use
  Company Number: US-009507513-1207USA009288

PATIENT
  Sex: Female

DRUGS (7)
  1. FOSAMAX [Suspect]
     Indication: OSTEOPOROSIS
     Dosage: 10 MG, UNK
     Route: 048
     Dates: start: 200003, end: 200201
  2. FOSAMAX [Suspect]
     Dosage: 70 MG, QW
     Route: 048
     Dates: start: 200201
  3. CALCIUM (UNSPECIFIED) (+) VITAMIN D (UNSPECIFIED) [Concomitant]
     Dosage: 500 MG, BID
     Dates: start: 1995
  4. FERROUS SULFATE [Concomitant]
     Dosage: 300 MG, UNK
     Dates: start: 1995
  5. ASCORBIC ACID [Concomitant]
     Dosage: 250 MG, UNK
     Dates: start: 1995
  6. ALENDRONATE SODIUM [Suspect]
     Indication: OSTEOPOROSIS
     Dosage: 70 MG, QW
     Route: 048
     Dates: start: 200803, end: 20100804
  7. VITAMINS (UNSPECIFIED) [Suspect]

REACTIONS (14)
  - Femur fracture [Unknown]
  - Intramedullary rod insertion [Unknown]
  - Open reduction of fracture [Unknown]
  - Femur fracture [Unknown]
  - Convulsion [Unknown]
  - Fall [Unknown]
  - Fall [Unknown]
  - Blood pressure increased [Unknown]
  - Culture urine positive [Recovered/Resolved]
  - Dementia [Unknown]
  - Coeliac disease [Unknown]
  - Anaemia [Unknown]
  - Pyrexia [Recovered/Resolved]
  - Arthralgia [Unknown]
